FAERS Safety Report 9912516 (Version 2)
Quarter: 2014Q1

REPORT INFORMATION
  Report Type: Spontaneous
  Country: US (occurrence: US)
  Receive Date: 20140220
  Receipt Date: 20140227
  Transmission Date: 20141002
  Serious: No
  Sender: FDA-Public Use
  Company Number: US-009507513-1402USA008982

PATIENT
  Age: 27 Year
  Sex: Female
  Weight: 52.15 kg

DRUGS (1)
  1. NEXPLANON [Suspect]
     Dosage: 1 ROD
     Route: 059
     Dates: start: 20130925, end: 20140215

REACTIONS (4)
  - Peripheral coldness [Unknown]
  - Skin discolouration [Unknown]
  - Pain in extremity [Unknown]
  - Device breakage [Unknown]
